FAERS Safety Report 5049009-8 (Version None)
Quarter: 2006Q3

REPORT INFORMATION
  Report Type: 
  Country: None (occurrence: None)
  Receive Date: 20060712
  Receipt Date: 20051215
  Transmission Date: 20061208
  Serious: No
  Sender: FDA-Public Use
  Company Number: US-GLAXOSMITHKLINE-A0585956A

PATIENT
  Age: 26 Year
  Sex: Male

DRUGS (12)
  1. IMITREX [Suspect]
     Dosage: 50MG AS REQUIRED
     Route: 048
     Dates: start: 20051212, end: 20051213
  2. ABILIFY [Concomitant]
  3. EFFEXOR [Concomitant]
  4. KLONOPIN [Concomitant]
  5. BUSPAR [Concomitant]
  6. LITHIUM CARBONATE [Concomitant]
  7. COGENTIN [Concomitant]
  8. LUNESTA [Concomitant]
  9. BIRTH CONTROL PILLS [Concomitant]
  10. NEXIUM [Concomitant]
  11. INDERAL [Concomitant]
  12. AXERT [Concomitant]

REACTIONS (1)
  - CONTUSION [None]
